FAERS Safety Report 4443503-6 (Version None)
Quarter: 2004Q3

REPORT INFORMATION
  Report Type: 
  Country: None (occurrence: None)
  Receive Date: 20040903
  Receipt Date: 20040903
  Transmission Date: 20050211
  Serious: Yes (Hospitalization)
  Sender: FDA-Public Use
  Company Number: None

PATIENT
  Age: 49 Year
  Sex: Female
  Weight: 61.6892 kg

DRUGS (6)
  1. TAXOL [Suspect]
     Indication: NON-SMALL CELL LUNG CANCER
     Dosage: 200 MG/M2 Q3 WEEKS INTRAVENOUS
     Route: 042
     Dates: start: 20040823, end: 20040823
  2. CARBOPLATIN [Suspect]
     Dosage: AUC =6 Q3WEEKS INTRAVENOUS
     Route: 042
     Dates: start: 20040823, end: 20040823
  3. AZ6474 [Suspect]
     Dosage: 300 MG PO QD
  4. MICICLE MOUTH WASH [Concomitant]
  5. LORTAB [Concomitant]
  6. NYSTATIN [Concomitant]

REACTIONS (3)
  - DYSPNOEA [None]
  - OROPHARYNGEAL SWELLING [None]
  - PHARYNGOLARYNGEAL PAIN [None]
